FAERS Safety Report 9034862 (Version 1)
Quarter: 2013Q1

REPORT INFORMATION
  Report Type: Spontaneous
  Country: CA (occurrence: CA)
  Receive Date: 20130128
  Receipt Date: 20130128
  Transmission Date: 20140127
  Serious: Yes (Other)
  Sender: FDA-Public Use
  Company Number: PHHY2013CA007484

PATIENT
  Sex: Female

DRUGS (4)
  1. ACLASTA [Suspect]
     Indication: OSTEOPOROSIS
     Dosage: UNK
     Route: 042
     Dates: start: 20090310
  2. ACLASTA [Suspect]
     Dosage: UNK
     Route: 042
     Dates: start: 20100310
  3. ACLASTA [Suspect]
     Dosage: UNK
     Route: 042
     Dates: start: 20110309
  4. ACLASTA [Suspect]
     Dosage: UNK
     Route: 042
     Dates: start: 20120308

REACTIONS (2)
  - Heart valve incompetence [Unknown]
  - Hypertension [Unknown]
